FAERS Safety Report 19646771 (Version 2)
Quarter: 2021Q3

REPORT INFORMATION
  Report Type: Spontaneous
  Country: US (occurrence: US)
  Receive Date: 20210802
  Receipt Date: 20210806
  Transmission Date: 20211014
  Serious: Yes (Other)
  Sender: FDA-Public Use
  Company Number: US-PFIZER INC-202100945423

PATIENT
  Age: 53 Year
  Sex: Female
  Weight: 107.1 kg

DRUGS (2)
  1. LIPITOR [Suspect]
     Active Substance: ATORVASTATIN CALCIUM
     Indication: BLOOD CHOLESTEROL INCREASED
     Dosage: UNK
     Route: 065
  2. ARIMIDEX [Suspect]
     Active Substance: ANASTROZOLE
     Indication: BREAST CANCER
     Dosage: 1 DF, DAILY
     Route: 048
     Dates: start: 2008, end: 2013

REACTIONS (5)
  - Nausea [Recovered/Resolved]
  - Goitre [Not Recovered/Not Resolved]
  - Pain in extremity [Recovered/Resolved]
  - Diabetes mellitus [Recovered/Resolved]
  - Hypertension [Recovered/Resolved]

NARRATIVE: CASE EVENT DATE: 2008
